FAERS Safety Report 5424263-9 (Version None)
Quarter: 2007Q3

REPORT INFORMATION
  Report Type: 
  Country: None (occurrence: None)
  Receive Date: 20070727
  Receipt Date: 20070521
  Transmission Date: 20080115
  Serious: No
  Sender: FDA-Public Use
  Company Number: 263863

PATIENT
  Age: 23 Year
  Sex: Female

DRUGS (2)
  1. LEVEMIR [Suspect]
     Indication: TYPE 1 DIABETES MELLITUS
     Dosage: SUBCUTANEOUS
     Route: 058
  2. EXUBERA (INSULIN) [Concomitant]

REACTIONS (3)
  - INFLUENZA LIKE ILLNESS [None]
  - NEUROPATHY [None]
  - RASH GENERALISED [None]
